FAERS Safety Report 12654372 (Version 1)
Quarter: 2016Q3

REPORT INFORMATION
  Report Type: Spontaneous
  Country: US (occurrence: None)
  Receive Date: 20160815
  Receipt Date: 20160815
  Transmission Date: 20161109
  Serious: No
  Sender: FDA-Public Use
  Company Number: None

PATIENT
  Age: 31 Year
  Sex: Male
  Weight: 117.94 kg

DRUGS (1)
  1. CIPROFLOXACIN HCL 500MG [Suspect]
     Active Substance: CIPROFLOXACIN HYDROCHLORIDE
     Indication: ORCHITIS
     Dosage: 1 TABLET(S) TWICE A DAY TAKEN BY MOUTH
     Route: 048
     Dates: start: 20160724, end: 20160731

REACTIONS (2)
  - Neck pain [None]
  - Musculoskeletal pain [None]

NARRATIVE: CASE EVENT DATE: 20160728
